FAERS Safety Report 9641808 (Version 2)
Quarter: 2014Q2

REPORT INFORMATION
  Report Type: Report from Study
  Country: US (occurrence: US)
  Receive Date: 20131023
  Receipt Date: 20140602
  Transmission Date: 20141212
  Serious: Yes (Other)
  Sender: FDA-Public Use
  Company Number: US-US-EMD SERONO, INC.-7244402

PATIENT
  Age: 63 Year
  Sex: Female

DRUGS (1)
  1. REBIF [Suspect]
     Indication: MULTIPLE SCLEROSIS
     Route: 058
     Dates: start: 20111115

REACTIONS (9)
  - Escherichia urinary tract infection [Recovered/Resolved]
  - Suicidal ideation [Recovered/Resolved]
  - Depression [Recovered/Resolved]
  - Flatulence [Unknown]
  - Retching [Unknown]
  - Confusional state [Unknown]
  - Fall [Unknown]
  - Nausea [Unknown]
  - Muscle spasms [Recovered/Resolved]
